FAERS Safety Report 10707928 (Version 4)
Quarter: 2015Q2

REPORT INFORMATION
  Report Type: Report from Study
  Country: JP (occurrence: JP)
  Receive Date: 20150113
  Receipt Date: 20150611
  Transmission Date: 20150821
  Serious: Yes (Other)
  Sender: FDA-Public Use
  Company Number: JP-BAYER-2014-153377

PATIENT
  Age: 72 Year
  Sex: Male
  Weight: 68 kg

DRUGS (17)
  1. BUFFERIN LOW-DOSE [Concomitant]
     Dosage: DAILY DOSE 1 DF
     Route: 048
     Dates: start: 200502
  2. HIRUDOID [Concomitant]
     Active Substance: GLYCOSAMINOGLYCANS
     Indication: PALMAR-PLANTAR ERYTHRODYSAESTHESIA SYNDROME
  3. DERMOSOL G [Concomitant]
     Indication: DRUG TOXICITY PROPHYLAXIS
     Dosage: UNK
     Route: 061
     Dates: start: 20140717
  4. NEXAVAR [Suspect]
     Active Substance: SORAFENIB
     Indication: PAPILLARY THYROID CANCER
     Dosage: 400 MG/DAY
     Route: 048
     Dates: start: 20141001
  5. FESOTERODINE [Concomitant]
     Active Substance: FESOTERODINE
     Dosage: DAILY DOSE 1 DF
     Route: 048
     Dates: start: 200502
  6. THYRADIN S [Concomitant]
     Active Substance: LEVOTHYROXINE SODIUM
     Indication: PAPILLARY THYROID CANCER
     Dosage: DAILY DOSE 125 ?G
     Route: 048
     Dates: start: 200502
  7. ASPARTATE CALCIUM [Concomitant]
     Dosage: DAILY DOSE 9 DF
     Route: 048
     Dates: start: 2005
  8. HIRUDOID [Concomitant]
     Active Substance: GLYCOSAMINOGLYCANS
     Indication: DRUG TOXICITY PROPHYLAXIS
     Dosage: UNK
     Route: 061
     Dates: start: 20140717
  9. ALFAROL [Concomitant]
     Active Substance: ALFACALCIDOL
     Indication: PAPILLARY THYROID CANCER
     Dosage: DAILY DOSE .25 ?G
     Route: 048
     Dates: end: 20141001
  10. MEVALOTIN [Concomitant]
     Active Substance: PRAVASTATIN SODIUM
     Dosage: DAILY DOSE 20 MG
     Route: 048
     Dates: start: 2005
  11. ALFACALCIDOL [Concomitant]
     Active Substance: ALFACALCIDOL
     Indication: PAPILLARY THYROID CANCER
     Dosage: DAILY DOSE 2 ?G
     Route: 048
     Dates: start: 200502
  12. CONIEL [Concomitant]
     Active Substance: BENIDIPINE HYDROCHLORIDE
     Dosage: DAILY DOSE 4 MG
     Route: 048
     Dates: start: 200502
  13. GOSHAJINKIGAN [Concomitant]
     Active Substance: HERBALS
     Dosage: DAILY DOSE 3 DF
     Route: 048
     Dates: start: 200502
  14. URIEF [Concomitant]
     Active Substance: SILODOSIN
     Dosage: DAILY DOSE 2 DF
     Route: 048
     Dates: start: 200502
  15. ALFAROL [Concomitant]
     Active Substance: ALFACALCIDOL
     Indication: PAPILLARY THYROID CANCER
     Dosage: DAILY DOSE .5 ?G
     Route: 048
     Dates: start: 20150408
  16. NEXAVAR [Suspect]
     Active Substance: SORAFENIB
     Indication: PAPILLARY THYROID CANCER
     Dosage: 800 MG/DAY
     Route: 048
     Dates: start: 20140717, end: 20140930
  17. DERMOSOL G [Concomitant]
     Indication: PALMAR-PLANTAR ERYTHRODYSAESTHESIA SYNDROME

REACTIONS (4)
  - Hypertension [Recovering/Resolving]
  - Tracheal haemorrhage [Recovered/Resolved]
  - Palmar-plantar erythrodysaesthesia syndrome [Recovered/Resolved]
  - Tracheal inflammation [Recovered/Resolved]

NARRATIVE: CASE EVENT DATE: 20140726
